FAERS Safety Report 5595969-6 (Version None)
Quarter: 2008Q1

REPORT INFORMATION
  Report Type: 
  Country: None (occurrence: None)
  Receive Date: 20080118
  Receipt Date: 20080116
  Transmission Date: 20080703
  Serious: Yes (Life-Threatening)
  Sender: FDA-Public Use
  Company Number: FR-ASTRAZENECA-2008CG00095

PATIENT
  Age: 23107 Day
  Sex: Female

DRUGS (4)
  1. DIPRIVAN [Suspect]
     Indication: INDUCTION OF ANAESTHESIA
     Route: 042
     Dates: start: 20071002, end: 20071002
  2. CELOCURIN [Suspect]
     Indication: INDUCTION OF ANAESTHESIA
     Dates: start: 20071002, end: 20071002
  3. SUFENTA [Suspect]
     Indication: INDUCTION OF ANAESTHESIA
     Dates: start: 20071002, end: 20071002
  4. NIMBEX [Suspect]
     Indication: INDUCTION OF ANAESTHESIA
     Dates: start: 20071002, end: 20071002

REACTIONS (2)
  - ANAPHYLACTIC SHOCK [None]
  - CIRCULATORY COLLAPSE [None]
